FAERS Safety Report 10654637 (Version 2)
Quarter: 2014Q4

REPORT INFORMATION
  Report Type: Spontaneous
  Country: US (occurrence: US)
  Receive Date: 20141216
  Receipt Date: 20141229
  Transmission Date: 20150529
  Serious: Yes (Death)
  Sender: FDA-Public Use
  Company Number: US-ACTELION-A-US2014-109370

PATIENT
  Age: 4 Month
  Sex: Female

DRUGS (3)
  1. SILDENAFIL. [Concomitant]
     Active Substance: SILDENAFIL
  2. TRACLEER [Suspect]
     Active Substance: BOSENTAN\BOSENTAN MONOHYDRATE
     Indication: PULMONARY ARTERIAL HYPERTENSION
     Dosage: UNK
     Route: 048
     Dates: end: 20141202
  3. DIGOXIN. [Concomitant]
     Active Substance: DIGOXIN

REACTIONS (2)
  - Respiratory failure [Fatal]
  - Cardiac arrest [Fatal]

NARRATIVE: CASE EVENT DATE: 20141202
